FAERS Safety Report 19742332 (Version 1)
Quarter: 2021Q3

REPORT INFORMATION
  Report Type: Spontaneous
  Country: DE (occurrence: DE)
  Receive Date: 20210824
  Receipt Date: 20210824
  Transmission Date: 20211014
  Serious: Yes (Hospitalization)
  Sender: FDA-Public Use
  Company Number: DE-MYLANLABS-2021M1054310

PATIENT
  Age: 71 Year
  Sex: Female

DRUGS (6)
  1. CANDESARTAN/HYDROCHLOROTHIAZIDE [Suspect]
     Active Substance: CANDESARTAN CILEXETIL\HYDROCHLOROTHIAZIDE
     Indication: PRODUCT USED FOR UNKNOWN INDICATION
     Dosage: UNK UNK, QD (8|12.5 MG, 1?0?0?0, TABLET)
     Route: 048
  2. SIMVASTATIN. [Concomitant]
     Active Substance: SIMVASTATIN
     Dosage: 20 MILLIGRAM, QD (20 MG, 1?0?0?0, TABLETTEN)
     Route: 048
  3. HYDROCORTISON                      /00028601/ [Concomitant]
     Active Substance: HYDROCORTISONE
     Dosage: 10 MILLIGRAM (10 MG, 2?0?0?0, TABLETTEN)
     Route: 048
  4. COLECALCIFEROL [Concomitant]
     Active Substance: CHOLECALCIFEROL
     Dosage: UNK (20,000 IU / WEEK, 1X, CAPSULES)
     Route: 048
  5. LEVOTHYROXINE SODIUM. [Concomitant]
     Active Substance: LEVOTHYROXINE SODIUM
     Dosage: 75 MICROGRAM, QD (75 ?G, 1?0?0?0, TABLETTEN)
     Route: 048
  6. PANTOPRAZOL                        /01263201/ [Concomitant]
     Active Substance: PANTOPRAZOLE
     Dosage: 40 MILLIGRAM, QD (40 MG, 1?0?0?0, TABLETTEN)
     Route: 048

REACTIONS (6)
  - Vomiting [Unknown]
  - Vertigo [Unknown]
  - Thirst [Unknown]
  - General physical health deterioration [Unknown]
  - Dizziness [Unknown]
  - Dehydration [Unknown]
